FAERS Safety Report 12896981 (Version 5)
Quarter: 2019Q2

REPORT INFORMATION
  Report Type: Spontaneous
  Country: US (occurrence: US)
  Receive Date: 20161031
  Receipt Date: 20190604
  Transmission Date: 20190711
  Serious: Yes (Other)
  Sender: FDA-Public Use
  Company Number: US-PFIZER INC-2016504564

PATIENT
  Age: 67 Year
  Sex: Male
  Weight: 77 kg

DRUGS (31)
  1. TIZANIDINE. [Concomitant]
     Active Substance: TIZANIDINE
     Indication: MUSCLE ATROPHY
     Dosage: 4 MG, 4X/DAY
  2. OXYCODONE [Concomitant]
     Active Substance: OXYCODONE
     Indication: SPONDYLOLISTHESIS
     Dosage: 30 MG, DAILY
     Dates: start: 201810
  3. VITAMIN B3 [Concomitant]
     Active Substance: NIACIN
     Dosage: 400 IU, UNK
  4. LISINOPRIL. [Concomitant]
     Active Substance: LISINOPRIL
     Dosage: 20 MG, 1X/DAY
     Route: 048
  5. MORPHINE SULFATE. [Concomitant]
     Active Substance: MORPHINE SULFATE
     Indication: CONDITION AGGRAVATED
     Dosage: 60 MG, DAILY [2 TABLETS TAKEN BY MOUTH DAILY]
     Route: 048
  6. KRILL OIL [Concomitant]
     Active Substance: DIETARY SUPPLEMENT
     Indication: CARDIOVASCULAR EVENT PROPHYLAXIS
     Dosage: 300 MG, 4X/DAY
  7. TERAZOSIN [Concomitant]
     Active Substance: TERAZOSIN\TERAZOSIN HYDROCHLORIDE
     Indication: BLOOD PRESSURE ABNORMAL
     Dosage: UNK
  8. NICOTROL [Suspect]
     Active Substance: NICOTINE
     Indication: SMOKING CESSATION THERAPY
     Dosage: 2 TO 3 CARTRIDGES, DAILY
     Route: 055
     Dates: start: 201602
  9. NICOTROL [Suspect]
     Active Substance: NICOTINE
     Indication: SMOKING CESSATION THERAPY
     Dosage: 1 VIAL PER 5-6 DAYS AVERAGE
     Route: 045
     Dates: start: 201602
  10. TIZANIDINE. [Concomitant]
     Active Substance: TIZANIDINE
     Indication: MUSCLE SPASMS
  11. MORPHINE SULFATE. [Concomitant]
     Active Substance: MORPHINE SULFATE
     Indication: BONE PAIN
     Dosage: 15 MG, 4X/DAY
  12. MORPHINE SULFATE. [Concomitant]
     Active Substance: MORPHINE SULFATE
     Indication: PAIN
     Dosage: 30 MG, 3X/DAY
     Dates: start: 201701
  13. BOSWELLIA COMPLEX [Concomitant]
     Indication: ARTHRITIS
     Dosage: 3000 MG, DAILY
  14. VITAMIN D3 [Concomitant]
     Active Substance: CHOLECALCIFEROL
     Indication: VITAMIN SUPPLEMENTATION
     Dosage: 2000 IU, 1X/DAY
  15. NICOTROL [Suspect]
     Active Substance: NICOTINE
     Dosage: 4MG DELIVERED: SOMETIMES 4 NICOTROL CARTRIDGES/DAY, OTHERS 2-3/DAY
     Dates: start: 20190215
  16. OXYCODONE [Concomitant]
     Active Substance: OXYCODONE
     Indication: ARTHRITIS
     Dosage: 15 MG, 3X/DAY
     Dates: start: 2007
  17. ASPIRIN. [Concomitant]
     Active Substance: ASPIRIN
     Indication: CARDIOVASCULAR EVENT PROPHYLAXIS
     Dosage: 83 MG, 3X/DAY
  18. SAW PALMETTO [Concomitant]
     Active Substance: HERBALS\SAW PALMETTO
     Dosage: 550 MG, 4X/DAY
  19. TIZANIDINE. [Concomitant]
     Active Substance: TIZANIDINE
     Indication: MUSCLE SPASMS
  20. NICOTROL [Suspect]
     Active Substance: NICOTINE
     Dosage: 10-20 SQUIRTS DAY
     Route: 045
  21. NICOTROL [Suspect]
     Active Substance: NICOTINE
     Dosage: 100 DOSE CARTRIDGE: 1 SQUIRT IN EACH NOSTRIL=ONE DOSE; CLOSER TO 5 DAYS USE FROM 1 CARTRIDGE
  22. LISINOPRIL. [Concomitant]
     Active Substance: LISINOPRIL
     Indication: BLOOD PRESSURE ABNORMAL
     Dosage: 10 MG, 1X/DAY
  23. OXYCODONE [Concomitant]
     Active Substance: OXYCODONE
     Indication: BONE PAIN
  24. OXYCODONE [Concomitant]
     Active Substance: OXYCODONE
     Indication: SCIATIC NERVE NEUROPATHY
  25. GLUCOSAMINE SULFATE [Concomitant]
     Active Substance: GLUCOSAMINE SULFATE
     Indication: BONE PAIN
     Dosage: 500 MG, 4X/DAY
  26. OXYCODONE [Concomitant]
     Active Substance: OXYCODONE
     Indication: CERVICAL SPINAL STENOSIS
     Dosage: 60 MG, DAILY [4 TABLETS]
     Route: 048
  27. OXYCODONE [Concomitant]
     Active Substance: OXYCODONE
     Indication: PAIN
  28. OMEGA 3 [Concomitant]
     Active Substance: OMEGA-3 FATTY ACIDS
     Indication: CARDIOVASCULAR EVENT PROPHYLAXIS
     Dosage: 1200 MG, UNK (TAKES THREE, FOUR TIMES A DAY)
  29. AMITRIPTYLIN [Concomitant]
     Active Substance: AMITRIPTYLINE
     Indication: SCIATICA
     Dosage: 25 MG, UNK
     Dates: start: 201701
  30. AMITRIPTYLIN [Concomitant]
     Active Substance: AMITRIPTYLINE
     Indication: SPONDYLOLISTHESIS
     Dosage: 50 MG, 1X/DAY [50MG TABLET TAKEN BY MOUTH ONCE DAILY]
     Route: 048
  31. HCTZ [Concomitant]
     Active Substance: HYDROCHLOROTHIAZIDE
     Indication: BLOOD PRESSURE ABNORMAL
     Dosage: 12.5 MG, 1X/DAY

REACTIONS (10)
  - Product dispensing error [Unknown]
  - Therapeutic product effect incomplete [Not Recovered/Not Resolved]
  - Sciatic nerve neuropathy [Unknown]
  - Nasal discomfort [Unknown]
  - Intentional product use issue [Unknown]
  - Bone pain [Unknown]
  - Condition aggravated [Unknown]
  - Diabetes mellitus [Not Recovered/Not Resolved]
  - Thyroid mass [Not Recovered/Not Resolved]
  - Dysphagia [Not Recovered/Not Resolved]

NARRATIVE: CASE EVENT DATE: 201701
